FAERS Safety Report 7345133-5 (Version None)
Quarter: 2011Q1

REPORT INFORMATION
  Report Type: 
  Country: None (occurrence: None)
  Receive Date: 20110310
  Receipt Date: 20101221
  Transmission Date: 20110831
  Serious: Yes (Other)
  Sender: FDA-Public Use
  Company Number: US-B.I. PHARMACEUTICALS,INC./RIDGEFIELD-2011-DE-01617BY

PATIENT
  Age: 85 Year
  Sex: Female
  Weight: 62.1 kg

DRUGS (6)
  1. BENADRYL [Suspect]
     Indication: SLEEP DISORDER
     Dosage: DAILY
     Route: 048
     Dates: start: 20101130, end: 20101130
  2. AMLODIPINE BESILATE [Suspect]
     Dosage: 10 MG
     Route: 065
  3. CARVEDILOL [Suspect]
     Indication: BLOOD PRESSURE
     Dosage: 6.25 MG
     Route: 065
  4. BENADRYL [Suspect]
     Dosage: DAILY
     Route: 048
     Dates: start: 20101201, end: 20101201
  5. TELMISARTAN [Suspect]
     Dosage: 80 MG
     Route: 065
  6. ACETYLSALICYLIC ACID [Concomitant]
     Dosage: }100 MG

REACTIONS (3)
  - FALL [None]
  - SYNCOPE [None]
  - DIZZINESS [None]
